FAERS Safety Report 5928508-8 (Version None)
Quarter: 2008Q4

REPORT INFORMATION
  Report Type: 
  Country: None (occurrence: None)
  Receive Date: 20081023
  Receipt Date: 20081013
  Transmission Date: 20090506
  Serious: Yes (Other)
  Sender: FDA-Public Use
  Company Number: US-WATSON-2008-06106

PATIENT
  Sex: Male
  Weight: 104 kg

DRUGS (9)
  1. ANDRODERM [Suspect]
     Indication: BLOOD TESTOSTERONE DECREASED
     Dosage: 1 PATCH, DAILY
     Route: 062
     Dates: start: 20081011, end: 20081012
  2. ANDRODERM [Suspect]
     Dosage: 1 PATCH, DAILY
     Route: 062
     Dates: start: 20080501, end: 20080601
  3. ANDROGEL [Suspect]
     Indication: BLOOD TESTOSTERONE DECREASED
     Dosage: 10 G, DAILY
     Route: 065
     Dates: start: 20060101
  4. ZESTORETIC [Concomitant]
     Indication: CARDIOVASCULAR DISORDER
     Dosage: 1/2  TABLET, DAILY
     Route: 048
     Dates: start: 19980101
  5. XALATAN [Concomitant]
     Indication: GLAUCOMA
     Dosage: 1 GTT, EACH EYE, QPM
     Route: 047
     Dates: start: 19930101
  6. VYTORIN [Concomitant]
     Indication: BLOOD CHOLESTEROL
     Dosage: 20 MG, DAILY
     Route: 048
     Dates: start: 20060101
  7. MULTIVITAMIN                       /00831701/ [Concomitant]
     Indication: SUPPLEMENTATION THERAPY
     Dosage: 1 TABLET, DAILY
     Route: 048
     Dates: start: 19980101
  8. GLUCOSAMINE /CHOND/MSM                 /03040701/ [Concomitant]
     Indication: SUPPLEMENTATION THERAPY
     Dosage: 2 TABLET, DAILY
     Route: 048
     Dates: start: 20020101
  9. NEXIUM [Concomitant]
     Indication: GASTROOESOPHAGEAL REFLUX DISEASE
     Dosage: 40 MG, DAILY
     Route: 048
     Dates: start: 20060101

REACTIONS (6)
  - APPLICATION SITE ERYTHEMA [None]
  - APPLICATION SITE PRURITUS [None]
  - APPLICATION SITE SWELLING [None]
  - APPLICATION SITE VESICLES [None]
  - IDIOPATHIC THROMBOCYTOPENIC PURPURA [None]
  - PURPURA [None]
